FAERS Safety Report 15967061 (Version 3)
Quarter: 2019Q1

REPORT INFORMATION
  Report Type: Report from Study
  Country: US (occurrence: US)
  Receive Date: 20190215
  Receipt Date: 20190328
  Transmission Date: 20190418
  Serious: Yes (Hospitalization)
  Sender: FDA-Public Use
  Company Number: US-SA-2019SA039238

PATIENT
  Age: 70 Year
  Sex: Male

DRUGS (6)
  1. HUMALOG [Concomitant]
     Active Substance: INSULIN LISPRO
     Dosage: 15 U
  2. INSULIN GLARGINE [Suspect]
     Active Substance: INSULIN GLARGINE
     Indication: TYPE 2 DIABETES MELLITUS
     Dosage: 45 U, QD
     Route: 058
  3. INSULIN GLARGINE [Suspect]
     Active Substance: INSULIN GLARGINE
     Dosage: 40 U, QD
     Route: 058
     Dates: start: 20190116
  4. HUMALOG [Concomitant]
     Active Substance: INSULIN LISPRO
     Dosage: 13 U
     Dates: start: 20190116
  5. APIDRA [Concomitant]
     Active Substance: INSULIN GLULISINE
     Dosage: 13 U, TID
     Route: 058
     Dates: start: 20190116
  6. APIDRA [Concomitant]
     Active Substance: INSULIN GLULISINE
     Indication: TYPE 2 DIABETES MELLITUS
     Dosage: 15 U, TID
     Route: 058
     Dates: start: 2017

REACTIONS (4)
  - Cardiac failure congestive [Recovered/Resolved]
  - Blood glucose increased [Recovered/Resolved]
  - Inability to afford medication [Unknown]
  - Product use complaint [Unknown]

NARRATIVE: CASE EVENT DATE: 201811
